FAERS Safety Report 5760687-8 (Version None)
Quarter: 2008Q2

REPORT INFORMATION
  Report Type: 
  Country: None (occurrence: None)
  Receive Date: 20080606
  Receipt Date: 20080529
  Transmission Date: 20081010
  Serious: Yes (Hospitalization)
  Sender: FDA-Public Use
  Company Number: JP-BRISTOL-MYERS SQUIBB COMPANY-14191324

PATIENT
  Age: 64 Year
  Sex: Male

DRUGS (5)
  1. MEVALOTIN [Suspect]
     Indication: HYPERLIPIDAEMIA
     Route: 048
     Dates: start: 20080220, end: 20080422
  2. RHEUMATREX [Suspect]
     Route: 048
     Dates: start: 20040727, end: 20080422
  3. SELBEX [Concomitant]
     Indication: RHEUMATOID ARTHRITIS
     Dosage: RESTARTED ON 6-MAY-2008
     Route: 048
     Dates: start: 20040727, end: 20080422
  4. FOLIAMIN [Concomitant]
     Indication: RHEUMATOID ARTHRITIS
     Route: 048
     Dates: start: 20040903, end: 20080422
  5. FAMOTIDINE [Concomitant]
     Indication: RHEUMATOID ARTHRITIS
     Dosage: INTERRUPTED ON 2005,RESTARTED ON 09-MAY-2008.
     Route: 048
     Dates: start: 20070810, end: 20080422

REACTIONS (2)
  - HEADACHE [None]
  - LIVER DISORDER [None]
